FAERS Safety Report 18950137 (Version 1)
Quarter: 2021Q1

REPORT INFORMATION
  Report Type: Spontaneous
  Country: US (occurrence: US)
  Receive Date: 20210228
  Receipt Date: 20210228
  Transmission Date: 20210420
  Serious: No
  Sender: FDA-Public Use
  Company Number: US-SA-2021SA065636

PATIENT
  Age: 66 Year
  Sex: Female

DRUGS (1)
  1. DUPIXENT [Suspect]
     Active Substance: DUPILUMAB
     Indication: DERMATITIS ATOPIC
     Dosage: DOSAGE? 300MG/2ML, EVERY OTHER WEEK
     Route: 058
     Dates: start: 20191127

REACTIONS (2)
  - Pigmentation disorder [Unknown]
  - Rash papular [Recovering/Resolving]
